FAERS Safety Report 5322392-1 (Version None)
Quarter: 2007Q2

REPORT INFORMATION
  Report Type: 
  Country: None (occurrence: None)
  Receive Date: 20070511
  Receipt Date: 20070502
  Transmission Date: 20071010
  Serious: Yes (Hospitalization, Other)
  Sender: FDA-Public Use
  Company Number: US-ELI_LILLY_AND_COMPANY-US200611005471

PATIENT
  Age: 76 Year
  Sex: Female

DRUGS (10)
  1. FORTEO [Suspect]
     Indication: OSTEOPOROSIS
     Dosage: 20 UG, DAILY (1/D)
     Dates: start: 20061107
  2. NORVASC [Concomitant]
     Indication: HYPERTENSION
     Dosage: 5 MG, DAILY (1/D)
  3. PREMARIN [Concomitant]
     Indication: HYSTERECTOMY
     Dosage: 0.625 MG, DAILY (1/D)
  4. PROTONIX [Concomitant]
     Indication: DYSPEPSIA
     Dosage: 30 MG, DAILY (1/D)
  5. CALCIUM WITH VITAMIN D [Concomitant]
     Dosage: 500 MG, DAILY (1/D)
  6. VITAMIN E [Concomitant]
     Dosage: 400 MG, DAILY (1/D)
  7. GLUCOSAMINE [Concomitant]
     Dosage: 1500 MG, DAILY (1/D)
  8. ASCORBIC ACID [Concomitant]
     Dosage: 100 MG, DAILY (1/D)
  9. CELEBREX [Concomitant]
  10. LEVOTHYROXINE SODIUM [Concomitant]
     Indication: THYROID MASS

REACTIONS (5)
  - ARTHRALGIA [None]
  - ARTHROPATHY [None]
  - CHONDROPATHY [None]
  - JOINT EFFUSION [None]
  - JOINT SWELLING [None]
